FAERS Safety Report 4993793-6 (Version None)
Quarter: 2006Q2

REPORT INFORMATION
  Report Type: 
  Country: None (occurrence: None)
  Receive Date: 20060503
  Receipt Date: 20060503
  Transmission Date: 20061013
  Serious: No
  Sender: FDA-Public Use
  Company Number: None

PATIENT
  Sex: Female
  Weight: 90.7194 kg

DRUGS (2)
  1. CEFTRIAXONE [Suspect]
     Indication: JOINT ABSCESS
     Dosage: 2 GRAMS EVERY 24 HOURS IV DRIP
     Route: 041
     Dates: start: 20060408, end: 20060506
  2. CEFTRIAXONE [Suspect]

REACTIONS (3)
  - FLUSHING [None]
  - PARAESTHESIA [None]
  - PARAESTHESIA ORAL [None]
